FAERS Safety Report 6111260-3 (Version None)
Quarter: 2009Q1

REPORT INFORMATION
  Report Type: 
  Country: None (occurrence: None)
  Receive Date: 20090311
  Receipt Date: 20090304
  Transmission Date: 20090719
  Serious: Yes (Other)
  Sender: FDA-Public Use
  Company Number: AT-AVENTIS-200911070GDDC

PATIENT
  Age: 62 Year
  Sex: Male

DRUGS (3)
  1. LANTUS [Suspect]
     Indication: DIABETES MELLITUS
     Route: 058
     Dates: start: 20080101
  2. APIDRA [Suspect]
     Dosage: DOSE: 1.2 CARBONHDYDRATE UNITS PRE-PRANDIAL
     Route: 058
     Dates: start: 20080101
  3. ACECOMB SEMI [Concomitant]
     Indication: HYPERTENSION
     Route: 048

REACTIONS (2)
  - RETINOPATHY [None]
  - VISUAL IMPAIRMENT [None]
